FAERS Safety Report 14224874 (Version 1)
Quarter: 2017Q4

REPORT INFORMATION
  Report Type: Spontaneous
  Country: US (occurrence: US)
  Receive Date: 20171127
  Receipt Date: 20171127
  Transmission Date: 20180321
  Serious: No
  Sender: FDA-Public Use
  Company Number: US-TEVA-762965ACC

PATIENT
  Sex: Male

DRUGS (1)
  1. RABEPRAZOLE [Suspect]
     Active Substance: RABEPRAZOLE
     Indication: GASTROOESOPHAGEAL REFLUX DISEASE
     Dosage: 20 MILLIGRAM DAILY; USED THE PRODUCT FOR ABOUT 5 YEARS

REACTIONS (3)
  - Pain [Not Recovered/Not Resolved]
  - Adverse event [Unknown]
  - Neuropathy peripheral [Not Recovered/Not Resolved]
